FAERS Safety Report 8921067 (Version 3)
Quarter: 2013Q1

REPORT INFORMATION
  Report Type: Report from Study
  Country: CA (occurrence: CA)
  Receive Date: 20121122
  Receipt Date: 20130318
  Transmission Date: 20140127
  Serious: Yes (Death)
  Sender: FDA-Public Use
  Company Number: CA-ROCHE-1158825

PATIENT
  Sex: Male

DRUGS (4)
  1. VEMURAFENIB [Suspect]
     Indication: METASTATIC MALIGNANT MELANOMA
     Route: 048
     Dates: start: 201206, end: 201211
  2. IBUPROFEN [Concomitant]
     Indication: HEADACHE
     Route: 065
  3. ZOPICLONE [Concomitant]
     Indication: SLEEP DISORDER
     Route: 065
  4. METOCLOPRAMIDE [Concomitant]
     Indication: NAUSEA
     Route: 065

REACTIONS (1)
  - Disease progression [Fatal]
